FAERS Safety Report 23645549 (Version 1)
Quarter: 2024Q1

REPORT INFORMATION
  Report Type: Report from Study
  Country: MX (occurrence: MX)
  Receive Date: 20240319
  Receipt Date: 20240319
  Transmission Date: 20240409
  Serious: Yes (Other)
  Sender: FDA-Public Use
  Company Number: MX-ABBVIE-5680654

PATIENT
  Age: 12 Year
  Sex: Female
  Weight: 38 kg

DRUGS (1)
  1. HUMIRA [Suspect]
     Active Substance: ADALIMUMAB
     Indication: Juvenile idiopathic arthritis
     Dosage: FORM STRENGTH: 40 MILLIGRAMS
     Route: 058
     Dates: start: 20210703

REACTIONS (11)
  - Autonomic nervous system imbalance [Recovering/Resolving]
  - Syncope [Unknown]
  - Influenza [Not Recovered/Not Resolved]
  - Hypotension [Recovering/Resolving]
  - Anxiety [Unknown]
  - Blepharitis [Not Recovered/Not Resolved]
  - Unevaluable event [Unknown]
  - Unevaluable event [Unknown]
  - Pain [Unknown]
  - Immune system disorder [Unknown]
  - Affective disorder [Unknown]

NARRATIVE: CASE EVENT DATE: 20231201
